FAERS Safety Report 10626748 (Version 2)
Quarter: 2014Q4

REPORT INFORMATION
  Report Type: Spontaneous
  Country: US (occurrence: US)
  Receive Date: 20141204
  Receipt Date: 20141230
  Transmission Date: 20150529
  Serious: Yes (Hospitalization, Other)
  Sender: FDA-Public Use
  Company Number: US-009507513-1411USA012923

PATIENT
  Age: 41 Year
  Sex: Male

DRUGS (10)
  1. TRIAMCINOLONE BENETONIDE [Concomitant]
     Dosage: 300 CGY
  2. FOLIC ACID. [Concomitant]
     Active Substance: FOLIC ACID
  3. NYSTATIN. [Concomitant]
     Active Substance: NYSTATIN
  4. SIROLIMUS. [Interacting]
     Active Substance: SIROLIMUS
     Indication: PROPHYLAXIS
  5. URSODIOL. [Concomitant]
     Active Substance: URSODIOL
  6. VANCOMYCIN [Concomitant]
     Active Substance: VANCOMYCIN
  7. CHOLECALCIFEROL [Concomitant]
     Active Substance: CHOLECALCIFEROL
  8. ALEMTUZUMAB [Concomitant]
     Active Substance: ALEMTUZUMAB
     Dosage: 1 MG/KG DIVIDED OVER 5 DAYS
  9. ACYCLOVIR. [Concomitant]
     Active Substance: ACYCLOVIR
  10. PRINIVIL [Suspect]
     Active Substance: LISINOPRIL
     Indication: PROTEINURIA
     Route: 048

REACTIONS (2)
  - Angioedema [Recovered/Resolved]
  - Drug interaction [Unknown]
